FAERS Safety Report 11781278 (Version 2)
Quarter: 2016Q3

REPORT INFORMATION
  Report Type: Report from Study
  Country: KR (occurrence: KR)
  Receive Date: 20151126
  Receipt Date: 20160902
  Transmission Date: 20161109
  Serious: Yes (Other)
  Sender: FDA-Public Use
  Company Number: KR-TEVA-613071ISR

PATIENT
  Age: 75 Year
  Sex: Female
  Weight: 52 kg

DRUGS (7)
  1. AZILECT [Suspect]
     Active Substance: RASAGILINE MESYLATE
     Indication: PARKINSON^S DISEASE
     Dosage: 1 MILLIGRAM DAILY;
     Route: 048
     Dates: start: 20150209, end: 20150511
  2. BENSERAZIDE TAB. 125 [Concomitant]
     Indication: PARKINSON^S DISEASE
     Dosage: 3 DOSAGE FORMS DAILY;
     Route: 048
     Dates: start: 20150309
  3. ITOPRIDE TAB. 50MG [Concomitant]
     Indication: PROPHYLAXIS
     Dosage: 150 MILLIGRAM DAILY;
     Route: 048
     Dates: start: 20090911
  4. CARBIDOPA+LEVODOPA TAB. 25-100 [Concomitant]
     Indication: PARKINSON^S DISEASE
     Dosage: 3 DOSAGE FORMS DAILY;
     Route: 048
     Dates: start: 20140818, end: 20150308
  5. XANAX TAB. 0.25MG [Concomitant]
     Indication: RAPID EYE MOVEMENTS SLEEP ABNORMAL
     Dosage: .5 MILLIGRAM DAILY;
     Route: 048
     Dates: start: 20121029
  6. RIVASTIGMINE CAP. 1.5MG [Concomitant]
     Indication: DEMENTIA
     Dosage: 3 MILLIGRAM DAILY;
     Route: 048
     Dates: start: 20141110
  7. MIRAPEX SR TAB. 0.75MG [Concomitant]
     Indication: PARKINSON^S DISEASE
     Dosage: .75 MILLIGRAM DAILY;
     Route: 048
     Dates: start: 20140818

REACTIONS (1)
  - Depressed level of consciousness [Recovering/Resolving]

NARRATIVE: CASE EVENT DATE: 20150310
